FAERS Safety Report 12674281 (Version 1)
Quarter: 2016Q3

REPORT INFORMATION
  Report Type: Spontaneous
  Country: GB (occurrence: GB)
  Receive Date: 20160822
  Receipt Date: 20160822
  Transmission Date: 20161109
  Serious: Yes (Hospitalization)
  Sender: FDA-Public Use
  Company Number: GB-IPCA LABORATORIES LIMITED-IPC201608-000678

PATIENT
  Age: 41 Year
  Sex: Female

DRUGS (4)
  1. VENLAFAXINE [Suspect]
     Active Substance: VENLAFAXINE HYDROCHLORIDE
  2. PROPRANOLOL HYDROCHLORIDE. [Suspect]
     Active Substance: PROPRANOLOL HYDROCHLORIDE
  3. OLANZAPINE. [Suspect]
     Active Substance: OLANZAPINE
  4. QUETIAPINE. [Suspect]
     Active Substance: QUETIAPINE

REACTIONS (10)
  - Acute respiratory distress syndrome [Unknown]
  - Seizure [Unknown]
  - Toxic leukoencephalopathy [Unknown]
  - Paralysis [Not Recovered/Not Resolved]
  - Overdose [Unknown]
  - Rhabdomyolysis [Unknown]
  - Toxicity to various agents [Unknown]
  - Cerebral infarction [Unknown]
  - Pneumonia aspiration [Unknown]
  - Neuroleptic malignant syndrome [Unknown]
